FAERS Safety Report 7905761-2 (Version None)
Quarter: 2011Q4

REPORT INFORMATION
  Report Type: 
  Country: None (occurrence: None)
  Receive Date: 20111108
  Receipt Date: 20111025
  Transmission Date: 20120403
  Serious: Yes (Other)
  Sender: FDA-Public Use
  Company Number: 2011P1009400

PATIENT
  Age: 60 Year
  Sex: Male
  Weight: 98.8842 kg

DRUGS (9)
  1. NORVASC [Concomitant]
  2. FENTANYL [Suspect]
     Indication: RENAL CYST
     Dosage: PATCH;Q3D;TDER 1 PATCH;Q1.5D;TDER
     Route: 062
     Dates: start: 20111001
  3. FENTANYL [Suspect]
     Indication: RENAL CYST
     Dosage: PATCH;Q3D;TDER 1 PATCH;Q1.5D;TDER
     Route: 062
     Dates: start: 20111009, end: 20111001
  4. GLYBURIDE [Concomitant]
  5. OXYCONTIN [Suspect]
     Indication: BREAKTHROUGH PAIN
     Dosage: 5 MG;PRN;
  6. CARISOPRODOL [Suspect]
     Indication: MUSCLE RELAXANT THERAPY
     Dosage: 0.5 TABLET;
  7. ATENOLOL [Concomitant]
  8. BENAZEPRIL HYDROCHLORIDE [Concomitant]
  9. COUMADIN [Concomitant]

REACTIONS (11)
  - SCREAMING [None]
  - TREATMENT NONCOMPLIANCE [None]
  - DRUG TOLERANCE [None]
  - INADEQUATE ANALGESIA [None]
  - ABNORMAL BEHAVIOUR [None]
  - BREAKTHROUGH PAIN [None]
  - INAPPROPRIATE SCHEDULE OF DRUG ADMINISTRATION [None]
  - DYSPNOEA [None]
  - ANGER [None]
  - VISUAL IMPAIRMENT [None]
  - PRODUCT ADHESION ISSUE [None]
